FAERS Safety Report 7275833-7 (Version None)
Quarter: 2011Q1

REPORT INFORMATION
  Report Type: 
  Country: None (occurrence: None)
  Receive Date: 20110204
  Receipt Date: 20110131
  Transmission Date: 20110831
  Serious: Yes (Hospitalization, Other)
  Sender: FDA-Public Use
  Company Number: US-ABBOTT-11P-163-0701375-00

PATIENT
  Sex: Male
  Weight: 127.12 kg

DRUGS (4)
  1. HUMIRA [Suspect]
     Indication: CROHN'S DISEASE
     Route: 058
     Dates: end: 20100701
  2. HUMIRA [Suspect]
     Route: 058
     Dates: start: 20100701
  3. LOMOTIL [Concomitant]
     Indication: DIARRHOEA
  4. LOMOTIL [Concomitant]
     Indication: CROHN'S DISEASE

REACTIONS (11)
  - VOMITING [None]
  - DRUG INEFFECTIVE [None]
  - INCISIONAL HERNIA [None]
  - PAIN [None]
  - PROCEDURAL PAIN [None]
  - BACK PAIN [None]
  - NAUSEA [None]
  - DRUG DOSE OMISSION [None]
  - WHITE BLOOD CELL COUNT INCREASED [None]
  - FAECAL VOLUME DECREASED [None]
  - CROHN'S DISEASE [None]
